FAERS Safety Report 15842977 (Version 1)
Quarter: 2019Q1

REPORT INFORMATION
  Report Type: Spontaneous
  Country: US (occurrence: US)
  Receive Date: 20190118
  Receipt Date: 20190118
  Transmission Date: 20190417
  Serious: Yes (Other)
  Sender: FDA-Public Use
  Company Number: US-JNJFOC-20190117668

PATIENT
  Sex: Male
  Weight: 81.65 kg

DRUGS (1)
  1. INVEGA [Suspect]
     Active Substance: PALIPERIDONE
     Indication: PRODUCT USED FOR UNKNOWN INDICATION
     Route: 048
     Dates: start: 2018, end: 2018

REACTIONS (5)
  - Mental impairment [Unknown]
  - Therapy cessation [Unknown]
  - Pain [Unknown]
  - Vertigo [Unknown]
  - Dizziness postural [Unknown]

NARRATIVE: CASE EVENT DATE: 2018
